FAERS Safety Report 5384829-1 (Version None)
Quarter: 2007Q3

REPORT INFORMATION
  Report Type: 
  Country: None (occurrence: None)
  Receive Date: 20070711
  Receipt Date: 20070626
  Transmission Date: 20080115
  Serious: Yes (Other)
  Sender: FDA-Public Use
  Company Number: GB-PFIZER INC-2007056110

PATIENT
  Sex: Female
  Weight: 74 kg

DRUGS (2)
  1. NEURONTIN [Suspect]
     Indication: EPILEPSY
     Route: 048
  2. VALPROATE SODIUM [Suspect]
     Indication: EPILEPSY
     Route: 048

REACTIONS (1)
  - ABORTION MISSED [None]
